FAERS Safety Report 18150725 (Version 2)
Quarter: 2020Q3

REPORT INFORMATION
  Report Type: Report from Study
  Country: PT (occurrence: PT)
  Receive Date: 20200814
  Receipt Date: 20200907
  Transmission Date: 20201103
  Serious: Yes (Other)
  Sender: FDA-Public Use
  Company Number: PT-UCBSA-2020031516

PATIENT
  Age: 53 Year
  Sex: Female

DRUGS (3)
  1. ROTIGOTINE [Suspect]
     Active Substance: ROTIGOTINE
     Indication: ON AND OFF PHENOMENON
     Dosage: UNK
  2. ONGENTYS [Suspect]
     Active Substance: OPICAPONE
     Indication: ON AND OFF PHENOMENON
     Dosage: UNK
  3. SINEMET [Suspect]
     Active Substance: CARBIDOPA\LEVODOPA
     Indication: ON AND OFF PHENOMENON
     Dosage: DOSE: 900 (UNSPECIFIED UNITS)

REACTIONS (12)
  - Reduced facial expression [Unknown]
  - Bradykinesia [Unknown]
  - Gait disturbance [Unknown]
  - Muscle rigidity [Unknown]
  - Pain [Unknown]
  - Dystonia [Unknown]
  - Sleep disorder [Unknown]
  - Dysphonia [Unknown]
  - Fatigue [Unknown]
  - Therapeutic response shortened [Unknown]
  - Balance disorder [Unknown]
  - Depression [Unknown]
